FAERS Safety Report 23965365 (Version 1)
Quarter: 2024Q2

REPORT INFORMATION
  Report Type: Spontaneous
  Country: US (occurrence: US)
  Receive Date: 20240612
  Receipt Date: 20240612
  Transmission Date: 20240716
  Serious: Yes (Hospitalization, Other)
  Sender: FDA-Public Use
  Company Number: US-AJANTA-2024AJA00099

PATIENT
  Age: 36 Year
  Sex: Female

DRUGS (1)
  1. DULOXETINE [Suspect]
     Active Substance: DULOXETINE
     Indication: Fibromyalgia
     Dates: start: 20220801, end: 20230124

REACTIONS (11)
  - Near death experience [Unknown]
  - Salivary hypersecretion [Unknown]
  - Photophobia [Unknown]
  - Product dose omission issue [Unknown]
  - Withdrawal syndrome [Unknown]
  - Headache [Recovered/Resolved]
  - Electric shock sensation [Unknown]
  - Dizziness [Recovered/Resolved]
  - Panic attack [Not Recovered/Not Resolved]
  - Serotonin syndrome [Unknown]
  - Suicidal ideation [Unknown]

NARRATIVE: CASE EVENT DATE: 20220801
